FAERS Safety Report 5124162-6 (Version None)
Quarter: 2006Q4

REPORT INFORMATION
  Report Type: 
  Country: None (occurrence: None)
  Receive Date: 20061010
  Receipt Date: 20060530
  Transmission Date: 20070319
  Serious: No
  Sender: FDA-Public Use
  Company Number: US-BRISTOL-MYERS SQUIBB COMPANY-13397047

PATIENT
  Age: 70 Year
  Sex: Female

DRUGS (2)
  1. AVAPRO [Suspect]
  2. TOPROL-XL [Suspect]

REACTIONS (1)
  - OEDEMA PERIPHERAL [None]
